FAERS Safety Report 16500275 (Version 1)
Quarter: 2019Q3

REPORT INFORMATION
  Report Type: Spontaneous
  Country: FR (occurrence: FR)
  Receive Date: 20190701
  Receipt Date: 20190701
  Transmission Date: 20191004
  Serious: Yes (Death, Hospitalization, Other)
  Sender: FDA-Public Use
  Company Number: FR-ACCORD-135889

PATIENT
  Age: 74 Year
  Sex: Male
  Weight: 90 kg

DRUGS (4)
  1. TIAPRIDE/TIAPRIDE HYDROCHLORIDE [Suspect]
     Active Substance: TIAPRIDE HYDROCHLORIDE
     Indication: MENTAL DISORDER
     Route: 048
     Dates: end: 20190601
  2. RISPERDAL [Suspect]
     Active Substance: RISPERIDONE
     Indication: MENTAL DISORDER
     Dosage: 4 MG FILM-COATED TABLETS
     Route: 048
  3. ATORVASTATIN/ATORVASTATIN CALCIUM [Suspect]
     Active Substance: ATORVASTATIN CALCIUM
     Indication: CARDIOVASCULAR EVENT PROPHYLAXIS
     Route: 048
  4. PARKINANE LP [Suspect]
     Active Substance: TRIHEXYPHENIDYL HYDROCHLORIDE
     Indication: PARKINSON^S DISEASE
     Dosage: 2 MG PROLONGED-RELEASE CAPSULE
     Route: 048

REACTIONS (7)
  - Gait disturbance [Not Recovered/Not Resolved]
  - Respiratory distress [Fatal]
  - Muscle spasms [Not Recovered/Not Resolved]
  - Dyspnoea [Fatal]
  - General physical health deterioration [Not Recovered/Not Resolved]
  - Cardio-respiratory arrest [Fatal]
  - Psychomotor skills impaired [Not Recovered/Not Resolved]

NARRATIVE: CASE EVENT DATE: 20190531
